FAERS Safety Report 23314842 (Version 1)
Quarter: 2023Q4

REPORT INFORMATION
  Report Type: Other
  Country: None (occurrence: US)
  Receive Date: 20231219
  Receipt Date: 20231219
  Transmission Date: 20240110
  Serious: Yes (Hospitalization)
  Sender: FDA-Public Use
  Company Number: US-Marksans Pharma Limited-2149546

PATIENT
  Age: 13 Year

DRUGS (4)
  1. FLUOXETINE [Suspect]
     Active Substance: FLUOXETINE HYDROCHLORIDE
     Indication: Intentional overdose
     Route: 048
  2. ESCITALOPRAM [Concomitant]
     Active Substance: ESCITALOPRAM OXALATE
  3. DEXTROAMPHETAMINE [Concomitant]
     Active Substance: DEXTROAMPHETAMINE
  4. MELATONIN [Concomitant]
     Active Substance: MELATONIN

REACTIONS (2)
  - Intentional overdose [None]
  - Generalised tonic-clonic seizure [Recovered/Resolved]
